FAERS Safety Report 7683739-4 (Version None)
Quarter: 2011Q3

REPORT INFORMATION
  Report Type: 
  Country: None (occurrence: None)
  Receive Date: 20110815
  Receipt Date: 20110802
  Transmission Date: 20111222
  Serious: Yes (Hospitalization)
  Sender: FDA-Public Use
  Company Number: US-CELGENEUS-163-21880-11060925

PATIENT
  Sex: Male

DRUGS (8)
  1. REVLIMID [Suspect]
     Route: 048
     Dates: start: 20010101
  2. METOPROLOL TARTRATE [Concomitant]
     Route: 065
  3. REVLIMID [Suspect]
     Dosage: 25 MILLIGRAM
     Route: 048
     Dates: start: 20090401
  4. PRILOSEC [Concomitant]
     Route: 065
  5. ZOMETA [Concomitant]
     Route: 065
  6. PRADAXA [Concomitant]
     Route: 065
  7. ASPIRIN [Concomitant]
     Route: 065
  8. DEXAMETHASONE [Concomitant]
     Route: 065

REACTIONS (2)
  - CHOLECYSTITIS ACUTE [None]
  - ARRHYTHMIA [None]
